FAERS Safety Report 7141865-2 (Version None)
Quarter: 2010Q4

REPORT INFORMATION
  Report Type: 
  Country: None (occurrence: None)
  Receive Date: 20101207
  Receipt Date: 20101129
  Transmission Date: 20110411
  Serious: Yes (Other)
  Sender: FDA-Public Use
  Company Number: ES-ROCHE-745212

PATIENT

DRUGS (4)
  1. BEVACIZUMAB [Suspect]
     Route: 065
  2. IRINOTECAN HCL [Suspect]
     Route: 042
  3. FLUOROURACIL [Suspect]
     Route: 042
  4. LEUCOVORIN [Suspect]
     Route: 042

REACTIONS (30)
  - ABDOMINAL INFECTION [None]
  - ABDOMINAL PAIN [None]
  - ALOPECIA [None]
  - ANASTOMOTIC LEAK [None]
  - ASTHENIA [None]
  - CONSTIPATION [None]
  - DIARRHOEA [None]
  - DYSPNOEA [None]
  - HAEMATOTOXICITY [None]
  - HAEMORRHAGE [None]
  - HAEMORRHOIDS [None]
  - HEADACHE [None]
  - HEPATOTOXICITY [None]
  - HICCUPS [None]
  - HYPERSENSITIVITY [None]
  - HYPERTENSION [None]
  - IMPAIRED HEALING [None]
  - MUCOSAL INFLAMMATION [None]
  - NAUSEA [None]
  - NEUROPATHY PERIPHERAL [None]
  - NEUTROPENIA [None]
  - OEDEMA [None]
  - OESOPHAGITIS [None]
  - PAIN [None]
  - PROTEINURIA [None]
  - PULMONARY EMBOLISM [None]
  - PYREXIA [None]
  - THROMBOPHLEBITIS [None]
  - VOMITING [None]
  - WOUND INFECTION [None]
